FAERS Safety Report 6237465-9 (Version None)
Quarter: 2009Q2

REPORT INFORMATION
  Report Type: 
  Country: None (occurrence: None)
  Receive Date: 20090619
  Receipt Date: 20090618
  Transmission Date: 20091009
  Serious: Yes (Death)
  Sender: FDA-Public Use
  Company Number: PHHY2009JP20287

PATIENT
  Sex: Male
  Weight: 45 kg

DRUGS (6)
  1. DIOVAN T30230+TAB+HY [Suspect]
     Indication: HYPERTENSION
     Dosage: 80 MG, QD
     Route: 048
     Dates: start: 20080412
  2. AMLODIPINE [Concomitant]
     Indication: HYPERTENSION
     Dosage: 10 MG, UNK
     Route: 048
     Dates: start: 20080412
  3. TENORMIN [Concomitant]
     Indication: HYPERTENSION
     Dosage: 25 MG, UNK
     Route: 048
     Dates: start: 20080413
  4. TAKEPRON [Concomitant]
     Dosage: 15 MG, UNK
     Route: 048
     Dates: start: 20080412
  5. BIOFERMIN [Concomitant]
     Dosage: 3 G, UNK
     Route: 048
     Dates: start: 20080414
  6. HARNAL [Concomitant]
     Dosage: 0.2 MG, UNK
     Route: 048
     Dates: start: 20080421

REACTIONS (2)
  - AORTIC ANEURYSM RUPTURE [None]
  - INFECTIVE ANEURYSM [None]
